FAERS Safety Report 17114251 (Version 1)
Quarter: 2019Q4

REPORT INFORMATION
  Report Type: Spontaneous
  Country: US (occurrence: US)
  Receive Date: 20191112
  Receipt Date: 20191112
  Transmission Date: 20200122
  Serious: Yes (Hospitalization)
  Sender: FDA-Public Use
  Company Number: None

PATIENT
  Age: 9 Year
  Sex: Female

DRUGS (2)
  1. GAMUNEX-C [Suspect]
     Active Substance: HUMAN IMMUNOGLOBULIN G
     Indication: ENCEPHALOMYELITIS
     Dosage: ?          OTHER FREQUENCY:DAILY FOR 2 DAYS;?
     Route: 042
     Dates: start: 20191030
  2. GAMUNEX-C [Suspect]
     Active Substance: HUMAN IMMUNOGLOBULIN G
     Indication: ENCEPHALITIS
     Dosage: ?          OTHER FREQUENCY:DAILY FOR 2 DAYS;?
     Route: 042
     Dates: start: 20191030

REACTIONS (1)
  - Meningitis [None]

NARRATIVE: CASE EVENT DATE: 20191031
